FAERS Safety Report 21601191 (Version 1)
Quarter: 2022Q4

REPORT INFORMATION
  Report Type: Other
  Country: CA (occurrence: CA)
  Receive Date: 20221116
  Receipt Date: 20221116
  Transmission Date: 20230113
  Serious: Yes (Hospitalization)
  Sender: FDA-Public Use
  Company Number: CA-PFIZER INC-202201302886

PATIENT
  Age: 37 Year
  Sex: Female

DRUGS (10)
  1. LORAZEPAM [Suspect]
     Active Substance: LORAZEPAM
     Indication: Schizoaffective disorder depressive type
     Dosage: 1 MG, 3X/DAY
  2. ZOPICLONE [Suspect]
     Active Substance: ZOPICLONE
     Indication: Schizoaffective disorder depressive type
     Dosage: UNK
  3. ZOPICLONE [Suspect]
     Active Substance: ZOPICLONE
     Indication: Catatonia
     Dosage: 7.5 MG, 1X/DAY
  4. ZOPICLONE [Suspect]
     Active Substance: ZOPICLONE
     Indication: Aggression
  5. ZOPICLONE [Suspect]
     Active Substance: ZOPICLONE
     Indication: Schizoaffective disorder depressive type
     Dosage: 15 MG, 4X/DAY
     Route: 048
  6. ZOPICLONE [Suspect]
     Active Substance: ZOPICLONE
     Indication: Catatonia
  7. ZOPICLONE [Suspect]
     Active Substance: ZOPICLONE
     Indication: Aggression
  8. CLOZARIL [Concomitant]
     Active Substance: CLOZAPINE
     Indication: Schizoaffective disorder depressive type
     Dosage: 250 MG, 1X/DAY
     Route: 048
  9. RISPERDAL CONSTA [Concomitant]
     Active Substance: RISPERIDONE
     Indication: Schizoaffective disorder depressive type
     Dosage: UNK, EVERY 2 WEEKS
     Route: 030
  10. ZOLOFT [Concomitant]
     Active Substance: SERTRALINE HYDROCHLORIDE
     Indication: Schizoaffective disorder depressive type
     Dosage: 50 MG, 1X/DAY
     Route: 048

REACTIONS (5)
  - Off label use [Unknown]
  - Aggression [Unknown]
  - Agitation [Unknown]
  - Catatonia [Unknown]
  - Paradoxical drug reaction [Unknown]
